FAERS Safety Report 15057324 (Version 1)
Quarter: 2018Q2

REPORT INFORMATION
  Report Type: Spontaneous
  Country: US (occurrence: US)
  Receive Date: 20180625
  Receipt Date: 20180625
  Transmission Date: 20180711
  Serious: Yes (Other)
  Sender: FDA-Public Use
  Company Number: US-SHILPA MEDICARE LIMITED-SML-US-2018-00041

PATIENT
  Age: 43 Year
  Sex: Female

DRUGS (20)
  1. CYCLOPHOSPHAMIDE. [Suspect]
     Active Substance: CYCLOPHOSPHAMIDE
     Indication: OESTROGEN RECEPTOR POSITIVE BREAST CANCER
  2. DENOSUMAB [Suspect]
     Active Substance: DENOSUMAB
     Indication: OESTROGEN RECEPTOR POSITIVE BREAST CANCER
  3. GOSERELIN [Suspect]
     Active Substance: GOSERELIN
     Indication: OESTROGEN RECEPTOR POSITIVE BREAST CANCER
  4. LETROZOLE. [Suspect]
     Active Substance: LETROZOLE
     Indication: OESTROGEN RECEPTOR POSITIVE BREAST CANCER
  5. ANASTROZOLE. [Suspect]
     Active Substance: ANASTROZOLE
     Indication: OESTROGEN RECEPTOR POSITIVE BREAST CANCER
  6. DOCETAXEL. [Suspect]
     Active Substance: DOCETAXEL
     Indication: OESTROGEN RECEPTOR POSITIVE BREAST CANCER
  7. DOCETAXEL. [Suspect]
     Active Substance: DOCETAXEL
     Indication: HER-2 POSITIVE BREAST CANCER
  8. TAMOXIFEN [Suspect]
     Active Substance: TAMOXIFEN
     Indication: HER-2 POSITIVE BREAST CANCER
  9. CAPECITABINE, UNKNOWN [Suspect]
     Active Substance: CAPECITABINE
     Indication: OESTROGEN RECEPTOR POSITIVE BREAST CANCER
  10. CAPECITABINE, UNKNOWN [Suspect]
     Active Substance: CAPECITABINE
     Indication: HER-2 POSITIVE BREAST CANCER
  11. DOXORUBICIN [Suspect]
     Active Substance: DOXORUBICIN
     Indication: HER-2 POSITIVE BREAST CANCER
  12. EXEMESTANE. [Suspect]
     Active Substance: EXEMESTANE
     Indication: HER-2 POSITIVE BREAST CANCER
  13. CYCLOPHOSPHAMIDE. [Suspect]
     Active Substance: CYCLOPHOSPHAMIDE
     Indication: HER-2 POSITIVE BREAST CANCER
  14. DOXORUBICIN [Suspect]
     Active Substance: DOXORUBICIN
     Indication: OESTROGEN RECEPTOR POSITIVE BREAST CANCER
  15. EXEMESTANE. [Suspect]
     Active Substance: EXEMESTANE
     Indication: OESTROGEN RECEPTOR POSITIVE BREAST CANCER
  16. GOSERELIN [Suspect]
     Active Substance: GOSERELIN
     Indication: HER-2 POSITIVE BREAST CANCER
  17. ANASTROZOLE. [Suspect]
     Active Substance: ANASTROZOLE
     Indication: HER-2 POSITIVE BREAST CANCER
  18. DENOSUMAB [Suspect]
     Active Substance: DENOSUMAB
     Indication: HER-2 POSITIVE BREAST CANCER
  19. LETROZOLE. [Suspect]
     Active Substance: LETROZOLE
     Indication: HER-2 POSITIVE BREAST CANCER
  20. TAMOXIFEN [Suspect]
     Active Substance: TAMOXIFEN
     Indication: OESTROGEN RECEPTOR POSITIVE BREAST CANCER

REACTIONS (1)
  - Fibrous histiocytoma [Unknown]
